FAERS Safety Report 4390042-7 (Version None)
Quarter: 2004Q2

REPORT INFORMATION
  Report Type: 
  Country: None (occurrence: None)
  Receive Date: 20040630
  Receipt Date: 20040613
  Transmission Date: 20050107
  Serious: Yes (Hospitalization)
  Sender: FDA-Public Use
  Company Number: DSA_24574_2004

PATIENT
  Age: 19 Year
  Sex: Male
  Weight: 64 kg

DRUGS (8)
  1. ATIVAN [Suspect]
     Indication: INSOMNIA
     Dates: start: 20040528, end: 20040528
  2. EFFEXOR [Suspect]
     Indication: INSOMNIA
     Dates: start: 20040528, end: 20040528
  3. DORMICUM ROCHE [Suspect]
     Indication: INSOMNIA
     Dates: start: 20040328, end: 20040328
  4. MUCAINE [Suspect]
     Indication: INSOMNIA
     Dates: start: 20040528, end: 20040528
  5. ATIVAN [Suspect]
     Indication: ANXIETY
     Dosage: 1 MG Q DAY PO
     Route: 048
     Dates: start: 20010510
  6. EFFEXOR [Suspect]
     Indication: DEPRESSION
     Dosage: 75 MG QHS PO
     Route: 048
     Dates: start: 20040326
  7. DORMICUM ROCHE [Suspect]
     Indication: INSOMNIA
     Dosage: 7.5 MG Q DAY PO
     Route: 048
     Dates: start: 20040326
  8. MUCAINE [Suspect]
     Indication: PROPHYLAXIS OF NAUSEA AND VOMITING
     Dosage: 1 TAB Q DAY PO
     Route: 048
     Dates: start: 20040326

REACTIONS (6)
  - CONSTIPATION [None]
  - DIZZINESS [None]
  - INSOMNIA [None]
  - LYMPHOCYTE COUNT INCREASED [None]
  - MONOCYTE COUNT INCREASED [None]
  - RED BLOOD CELL COUNT DECREASED [None]
